FAERS Safety Report 7654181-7 (Version None)
Quarter: 2011Q3

REPORT INFORMATION
  Report Type: 
  Country: None (occurrence: None)
  Receive Date: 20110803
  Receipt Date: 20110801
  Transmission Date: 20111222
  Serious: Yes (Hospitalization)
  Sender: FDA-Public Use
  Company Number: PHHO2010JP15018

PATIENT
  Sex: Male
  Weight: 59 kg

DRUGS (13)
  1. RAD001C [Suspect]
     Indication: PANCREATIC NEUROENDOCRINE TUMOUR
     Dosage: 10 MG, QD
     Route: 048
     Dates: start: 20090501, end: 20090716
  2. AMARYL [Concomitant]
     Indication: HYPERGLYCAEMIA
  3. PLACEBO [Suspect]
     Indication: PANCREATIC NEUROENDOCRINE TUMOUR
     Dosage: PLACEBO
     Route: 048
     Dates: start: 20090130
  4. CEREKINON [Concomitant]
     Indication: DIARRHOEA
  5. RAD001C [Suspect]
     Dosage: 10 MG, QD
     Route: 048
     Dates: start: 20100112, end: 20100608
  6. RABEPRAZOLE SODIUM [Concomitant]
     Indication: GASTRITIS
  7. LAC B [Concomitant]
     Indication: HYPERGLYCAEMIA
  8. CRESTOR [Concomitant]
     Indication: HYPERLIPIDAEMIA
  9. PROMAC [Concomitant]
     Indication: DYSGEUSIA
  10. RAD001C [Suspect]
     Dosage: 10 MG, QD
     Route: 048
     Dates: start: 20091014, end: 20100107
  11. RAD001C [Suspect]
     Dosage: 10 MG, QD
     Route: 048
     Dates: start: 20090718, end: 20091012
  12. ACTONEL [Concomitant]
     Indication: HYPERCALCAEMIA
  13. RAD001C [Suspect]
     Dosage: 10 MG, QD
     Route: 048
     Dates: start: 20100615

REACTIONS (7)
  - GASTROOESOPHAGEAL REFLUX DISEASE [None]
  - DIARRHOEA [None]
  - INFLUENZA [None]
  - NEOPLASM MALIGNANT [None]
  - BLOOD GASTRIN INCREASED [None]
  - GASTRINOMA [None]
  - PURULENCE [None]
